FAERS Safety Report 25228199 (Version 4)
Quarter: 2025Q2

REPORT INFORMATION
  Report Type: Spontaneous
  Country: US (occurrence: US)
  Receive Date: 20250423
  Receipt Date: 20250609
  Transmission Date: 20250716
  Serious: No
  Sender: ALEXION PHARMACEUTICALS
  Company Number: US-AstraZeneca-CH-00852639AP

PATIENT
  Age: 81 Year

DRUGS (1)
  1. AIRSUPRA [Suspect]
     Active Substance: ALBUTEROL SULFATE\BUDESONIDE

REACTIONS (4)
  - Lung disorder [Unknown]
  - Hypersensitivity [Unknown]
  - Asthma [Unknown]
  - Drug delivery system issue [Unknown]
